FAERS Safety Report 9262158 (Version 1)
Quarter: 2013Q2

REPORT INFORMATION
  Report Type: Spontaneous
  Country: PL (occurrence: PL)
  Receive Date: 20130430
  Receipt Date: 20130430
  Transmission Date: 20140414
  Serious: Yes (Other)
  Sender: FDA-Public Use
  Company Number: PL-AMGEN-POLSP2013029298

PATIENT
  Sex: Female

DRUGS (2)
  1. NEULASTA [Suspect]
     Indication: PRODUCT USED FOR UNKNOWN INDICATION
     Dosage: UNK
  2. CHEMOTHERAPEUTICS [Concomitant]
     Indication: BREAST CANCER
     Dosage: UNK

REACTIONS (5)
  - Interstitial lung disease [Unknown]
  - Acute respiratory distress syndrome [Unknown]
  - Influenza like illness [Unknown]
  - Dyspnoea [Unknown]
  - Cyanosis [Unknown]
